FAERS Safety Report 4914864-6 (Version None)
Quarter: 2006Q1

REPORT INFORMATION
  Report Type: 
  Country: None (occurrence: None)
  Receive Date: 20060217
  Receipt Date: 20060207
  Transmission Date: 20060701
  Serious: Yes (Hospitalization)
  Sender: FDA-Public Use
  Company Number: US-JNJFOC-20060202474

PATIENT
  Sex: Female
  Weight: 43.09 kg

DRUGS (16)
  1. DURAGESIC-100 [Suspect]
     Route: 062
  2. DURAGESIC-100 [Suspect]
     Route: 062
  3. DURAGESIC-100 [Suspect]
     Route: 062
  4. LOTREL [Concomitant]
     Route: 048
  5. LOTREL [Concomitant]
     Dosage: 5/20 MG ONE IN ONE DAY
     Route: 048
  6. LIPITOR [Concomitant]
     Route: 048
  7. ZOLOFT [Concomitant]
     Route: 048
  8. NEXIUM [Concomitant]
     Route: 048
  9. LEVOTHYROXINE SODIUM [Concomitant]
     Indication: THYROID DISORDER
     Route: 048
  10. FOSAMAX [Concomitant]
     Indication: OSTEOPOROSIS
     Route: 048
  11. AMBIEN [Concomitant]
     Indication: SLEEP DISORDER
     Dosage: 5 MG AT BEDTIME IF NECESSARY
     Route: 048
  12. VALIUM [Concomitant]
     Indication: ANXIETY
     Dosage: 5 MG AT BEDTIME IF NECESSARY
     Route: 048
  13. PERCOCET [Concomitant]
     Route: 048
  14. PERCOCET [Concomitant]
     Indication: PAIN
     Dosage: 100 MG EVERY 6 HOURS IF NECESSARY
     Route: 048
  15. CALCIUM GLUCONATE [Concomitant]
     Route: 048
  16. CELEBREX [Concomitant]
     Indication: PAIN
     Route: 048

REACTIONS (5)
  - BACK PAIN [None]
  - DEHYDRATION [None]
  - FALL [None]
  - INTERVERTEBRAL DISC DISPLACEMENT [None]
  - IRON DEFICIENCY ANAEMIA [None]
